APPROVED DRUG PRODUCT: LOSARTAN POTASSIUM
Active Ingredient: LOSARTAN POTASSIUM
Strength: 25MG
Dosage Form/Route: TABLET;ORAL
Application: A076958 | Product #001
Applicant: TEVA PHARMACEUTICALS USA INC
Approved: Apr 6, 2010 | RLD: No | RS: No | Type: DISCN